FAERS Safety Report 21743648 (Version 1)
Quarter: 2022Q4

REPORT INFORMATION
  Report Type: Report from Study
  Country: US (occurrence: US)
  Receive Date: 20221217
  Receipt Date: 20221217
  Transmission Date: 20230112
  Serious: Yes (Other)
  Sender: FDA-Public Use
  Company Number: US-002147023-NVSC2022US289338

PATIENT
  Sex: Male

DRUGS (6)
  1. ENTRESTO [Suspect]
     Active Substance: SACUBITRIL\VALSARTAN
     Indication: Cardiac failure
     Dosage: 1 DOSAGE FORM, BID (49/51 MG)
     Route: 065
     Dates: start: 20221112
  2. FUROSEMIDE [Concomitant]
     Active Substance: FUROSEMIDE
     Indication: Cardiac failure
     Dosage: UNK
     Route: 065
     Dates: start: 202211
  3. ATORVASTATIN [Concomitant]
     Active Substance: ATORVASTATIN
     Indication: Cardiac failure
     Dosage: UNK
     Route: 065
     Dates: start: 202211
  4. METOPROLOL [Concomitant]
     Active Substance: METOPROLOL
     Indication: Cardiac failure
     Dosage: UNK
     Route: 065
     Dates: start: 202211
  5. CLONAZEPAM [Concomitant]
     Active Substance: CLONAZEPAM
     Indication: Product used for unknown indication
     Dosage: UNK, PRN
     Route: 065
     Dates: start: 201912
  6. SYMBICORT [Concomitant]
     Active Substance: BUDESONIDE\FORMOTEROL FUMARATE DIHYDRATE
     Indication: Product used for unknown indication
     Dosage: UNK (STOPPED TAKING 1 WEEK AGO PER HCP)
     Route: 065
     Dates: start: 202209

REACTIONS (1)
  - Suicidal ideation [Recovering/Resolving]
